FAERS Safety Report 25258831 (Version 2)
Quarter: 2025Q2

REPORT INFORMATION
  Report Type: Spontaneous
  Country: PT (occurrence: PT)
  Receive Date: 20250501
  Receipt Date: 20250512
  Transmission Date: 20250717
  Serious: Yes (Other)
  Sender: AUROBINDO
  Company Number: PT-AUROBINDO-AUR-APL-2025-022486

PATIENT
  Age: 37 Year
  Sex: Male

DRUGS (3)
  1. TRANEXAMIC ACID [Suspect]
     Active Substance: TRANEXAMIC ACID
     Indication: Haemorrhage
     Route: 065
  2. FIBRINOGEN [Concomitant]
     Active Substance: FIBRINOGEN HUMAN
     Indication: Haemorrhage
     Route: 065
  3. PROTHROMBIN [Concomitant]
     Active Substance: PROTHROMBIN
     Indication: Haemorrhage
     Route: 065

REACTIONS (1)
  - Drug ineffective [Unknown]
